FAERS Safety Report 9008138 (Version 1)
Quarter: 2013Q1

REPORT INFORMATION
  Report Type: Spontaneous
  Country: US (occurrence: US)
  Receive Date: 20130111
  Receipt Date: 20130111
  Transmission Date: 20140127
  Serious: Yes (Other)
  Sender: FDA-Public Use
  Company Number: US-009507513-1301USA001776

PATIENT
  Age: 65 Year
  Sex: Female

DRUGS (8)
  1. SINGULAIR [Suspect]
     Indication: ASTHMA
  2. CLARITHROMYCIN [Suspect]
     Indication: CHRONIC OBSTRUCTIVE PULMONARY DISEASE
  3. EVISTA [Suspect]
  4. DICLOFENAC SODIUM [Suspect]
     Dosage: AS REQUIRED
     Route: 048
  5. ALBUTEROL [Suspect]
     Dosage: 2 PUFFS AS REQUIRED TO 8 PUFFS/DAY MAXIMAL
     Route: 055
  6. ATMADISC [Suspect]
     Dosage: 50 MCG/100MCG, UNK
  7. SPIRIVA [Suspect]
     Dosage: UNK
     Route: 055
  8. CORTICOSTEROIDS (UNSPECIFIED) [Concomitant]

REACTIONS (2)
  - Thrombocytopenia [Unknown]
  - Haemorrhage [Unknown]
